FAERS Safety Report 20505833 (Version 2)
Quarter: 2022Q1

REPORT INFORMATION
  Report Type: Spontaneous
  Country: US (occurrence: US)
  Receive Date: 20220223
  Receipt Date: 20220225
  Transmission Date: 20220423
  Serious: Yes (Life-Threatening, Hospitalization, Other)
  Sender: FDA-Public Use
  Company Number: US-MLMSERVICE-20220207-3359846-1

PATIENT
  Age: 78 Year
  Sex: Male

DRUGS (2)
  1. FLUOROURACIL [Suspect]
     Active Substance: FLUOROURACIL
     Indication: Ocular surface squamous neoplasia
     Dosage: STRENGTH: 1% , BIWEEKLY CYCLE OF 4 TIMES A DAY FOR ONE WEEK FOLLOWED BY A ONE WEEK HOLIDAY
     Route: 061
  2. DEXAMETHASONE [Suspect]
     Active Substance: DEXAMETHASONE
     Indication: Conjunctivitis
     Route: 047

REACTIONS (8)
  - Corneal toxicity [Recovered/Resolved]
  - Conjunctivitis [Recovered/Resolved]
  - Corneal perforation [Recovered/Resolved]
  - Condition aggravated [Recovered/Resolved]
  - Persistent corneal epithelial defect [Recovered/Resolved]
  - Intentional product misuse [Unknown]
  - Ulcerative keratitis [Recovered/Resolved]
  - Off label use [Unknown]
